FAERS Safety Report 6683023-1 (Version None)
Quarter: 2010Q2

REPORT INFORMATION
  Report Type: 
  Country: None (occurrence: None)
  Receive Date: 20100415
  Receipt Date: 20100409
  Transmission Date: 20101027
  Serious: Yes (Death, Life-Threatening, Hospitalization)
  Sender: FDA-Public Use
  Company Number: JP-BAYER-200913626BYL

PATIENT
  Age: 71 Year
  Sex: Male
  Weight: 76 kg

DRUGS (36)
  1. NEXAVAR [Suspect]
     Indication: HEPATIC NEOPLASM MALIGNANT
     Dosage: TOTAL DAILY DOSE: 800 MG  UNIT DOSE: 200 MG
     Route: 048
     Dates: start: 20090824, end: 20090924
  2. LETRAC [Concomitant]
     Dosage: SINCE BEFORE ADMINISTRATION
     Route: 048
     Dates: end: 20090831
  3. PRAVASTATIN SODIUM [Concomitant]
     Indication: HYPERLIPIDAEMIA
     Dosage: SINCE BEFORE ADMINISTRATION
     Route: 048
     Dates: end: 20090915
  4. NU-LOTAN [Concomitant]
     Indication: HYPERTENSION
     Dosage: SINCE BEFORE ADMINISTRATION
     Route: 048
     Dates: end: 20091011
  5. CALSLOT [Concomitant]
     Indication: HYPERTENSION
     Dosage: SINCE BEFORE ADMINISTRATION
     Route: 048
     Dates: end: 20091011
  6. URSO 250 [Concomitant]
     Indication: HEPATITIS
     Dosage: SINCE BEFORE ADMINISTRATION
     Route: 048
     Dates: end: 20091011
  7. MUCODYNE [Concomitant]
     Indication: PRODUCTIVE COUGH
     Dosage: SINCE BEFORE ADMINISTRATION
     Route: 048
     Dates: end: 20091011
  8. PYDOXAL [Concomitant]
     Indication: PROPHYLAXIS
     Route: 048
     Dates: start: 20090824, end: 20090924
  9. HIRUDOID [Concomitant]
     Indication: PROPHYLAXIS
     Route: 061
     Dates: start: 20090824, end: 20090924
  10. CASODEX [Concomitant]
     Indication: PROSTATE CANCER
     Route: 048
     Dates: start: 20090827, end: 20090829
  11. OXYCONTIN [Concomitant]
     Route: 048
     Dates: start: 20090831, end: 20091011
  12. OXINORM [Concomitant]
     Route: 048
     Dates: start: 20090831, end: 20091011
  13. MOBIC [Concomitant]
     Route: 048
     Dates: start: 20090831, end: 20091010
  14. MAGLAX [Concomitant]
     Route: 048
     Dates: start: 20090831, end: 20091011
  15. PURSENNID [Concomitant]
     Route: 048
     Dates: start: 20090831, end: 20091011
  16. ZOLADEX [Concomitant]
     Indication: PROSTATE CANCER
     Route: 058
     Dates: start: 20090831, end: 20090831
  17. BARACLUDE [Concomitant]
     Indication: HEPATITIS B
     Route: 048
     Dates: start: 20090901, end: 20091011
  18. NEOPHAGEN C [Concomitant]
     Indication: LIVER DISORDER
     Route: 042
     Dates: start: 20090908, end: 20090909
  19. NEOPHAGEN C [Concomitant]
     Route: 042
     Dates: start: 20090924, end: 20090924
  20. SULPERAZON [Concomitant]
     Indication: CHOLANGITIS
     Route: 042
     Dates: start: 20090908, end: 20090909
  21. REMINARON [Concomitant]
     Indication: PANCREATITIS
     Route: 042
     Dates: start: 20090908, end: 20090909
  22. OPYSTAN [Concomitant]
     Indication: INVESTIGATION
     Dosage: UNIT DOSE: 35 MG
     Route: 042
     Dates: start: 20090908, end: 20090908
  23. ROHYPNOL [Concomitant]
     Indication: INVESTIGATION
     Route: 042
     Dates: start: 20090908, end: 20090908
  24. TAMSULOSIN HCL [Concomitant]
     Indication: BENIGN PROSTATIC HYPERPLASIA
     Route: 048
     Dates: start: 20090914, end: 20091011
  25. FAMOSTAGINE-D [Concomitant]
     Indication: GASTRITIS PROPHYLAXIS
     Route: 048
     Dates: start: 20090925, end: 20091006
  26. LASIX [Concomitant]
     Route: 048
     Dates: start: 20091010, end: 20091010
  27. LASIX [Concomitant]
     Route: 048
     Dates: start: 20091001, end: 20091009
  28. ALDACTONE [Concomitant]
     Route: 048
     Dates: start: 20091010, end: 20091010
  29. ALDACTONE [Concomitant]
     Route: 048
     Dates: start: 20091001, end: 20091009
  30. LEUPROLIDE ACETATE [Concomitant]
     Indication: PROSTATE CANCER
     Route: 058
     Dates: start: 20091001, end: 20091001
  31. PIARLE [Concomitant]
     Route: 048
     Dates: start: 20091006, end: 20091006
  32. FUROSEMIDE [Concomitant]
     Route: 042
     Dates: start: 20091006, end: 20091011
  33. SOLDACTONE [Concomitant]
     Route: 042
     Dates: start: 20091006, end: 20091011
  34. FAMOTIDINE [Concomitant]
     Indication: GASTRITIS PROPHYLAXIS
     Route: 042
     Dates: start: 20091006, end: 20091012
  35. MORPHINE [Concomitant]
     Route: 042
     Dates: start: 20091011, end: 20091012
  36. TAKEPRON [Concomitant]
     Indication: GASTRITIS PROPHYLAXIS
     Route: 048
     Dates: start: 20091008, end: 20091008

REACTIONS (4)
  - HEPATIC ENCEPHALOPATHY [None]
  - HEPATIC NEOPLASM MALIGNANT [None]
  - MALIGNANT NEOPLASM PROGRESSION [None]
  - RASH [None]
